FAERS Safety Report 14946757 (Version 3)
Quarter: 2018Q4

REPORT INFORMATION
  Report Type: Spontaneous
  Country: JP (occurrence: JP)
  Receive Date: 20180529
  Receipt Date: 20181004
  Transmission Date: 20190204
  Serious: Yes (Other)
  Sender: FDA-Public Use
  Company Number: JP-ROCHE-2131502

PATIENT
  Sex: Female
  Weight: 37 kg

DRUGS (8)
  1. SULBACILLIN (JAPAN) [Concomitant]
     Active Substance: AMPICILLIN SODIUM\SULBACTAM SODIUM
     Indication: HAEMOPTYSIS
     Route: 065
     Dates: start: 20170601, end: 20170609
  2. SULBACILLIN (JAPAN) [Concomitant]
     Active Substance: AMPICILLIN SODIUM\SULBACTAM SODIUM
     Indication: PULMONARY CAVITATION
  3. PERJETA [Suspect]
     Active Substance: PERTUZUMAB
     Indication: BREAST CANCER
     Route: 041
     Dates: start: 20150813, end: 20150813
  4. DOCETAXEL. [Concomitant]
     Active Substance: DOCETAXEL
     Indication: BREAST CANCER
     Dosage: DOSAGE INTERVAL UNCERTAIN.
     Route: 041
     Dates: start: 20150813, end: 20160331
  5. HERCEPTIN [Suspect]
     Active Substance: TRASTUZUMAB
     Indication: BREAST CANCER
     Route: 041
     Dates: start: 20150813, end: 20150813
  6. PERJETA [Suspect]
     Active Substance: PERTUZUMAB
     Dosage: DOSE INTERVAL WAS UNCERTAIN
     Route: 041
     Dates: start: 20151015, end: 20160331
  7. HERCEPTIN [Suspect]
     Active Substance: TRASTUZUMAB
     Dosage: DOSE INTERVAL WAS UNCERTAIN
     Route: 041
     Dates: start: 20151015, end: 20160331
  8. ANASTROZOLE. [Concomitant]
     Active Substance: ANASTROZOLE

REACTIONS (3)
  - Haematemesis [Unknown]
  - Febrile neutropenia [Unknown]
  - Cardiac failure [Unknown]
